FAERS Safety Report 15874086 (Version 1)
Quarter: 2019Q1

REPORT INFORMATION
  Report Type: Other
  Country: US (occurrence: US)
  Receive Date: 20190126
  Receipt Date: 20190126
  Transmission Date: 20190417
  Serious: No
  Sender: FDA-Public Use
  Company Number: US-ACORDA-ACO_151213_2018

PATIENT
  Sex: Female
  Weight: 108.84 kg

DRUGS (1)
  1. AMPYRA [Suspect]
     Active Substance: DALFAMPRIDINE
     Indication: MULTIPLE SCLEROSIS
     Dosage: 1 DF, Q 12 HRS
     Route: 048
     Dates: start: 20180425

REACTIONS (2)
  - Oropharyngeal pain [Unknown]
  - Nausea [Unknown]
